FAERS Safety Report 7562557-1 (Version None)
Quarter: 2011Q2

REPORT INFORMATION
  Report Type: 
  Country: None (occurrence: None)
  Receive Date: 20110614
  Receipt Date: 20110203
  Transmission Date: 20111010
  Serious: No
  Sender: FDA-Public Use
  Company Number: 2011S1002374

PATIENT
  Age: 20 Year
  Sex: Female

DRUGS (5)
  1. HYDROQUINONE [Concomitant]
  2. FLUOXETINE HCL [Concomitant]
  3. CLINDAMYCIN AND BENZOYL PEROXIDE [Suspect]
     Indication: ACNE
     Dosage: PCT; EVERY MORNING; TOPICAL
     Route: 061
     Dates: start: 20100301, end: 20110101
  4. LOESTRIN FE 1/20 [Concomitant]
  5. RETIN-A [Concomitant]

REACTIONS (1)
  - APPLICATION SITE PAIN [None]
